FAERS Safety Report 14913621 (Version 1)
Quarter: 2018Q2

REPORT INFORMATION
  Report Type: Report from Study
  Country: DE (occurrence: DE)
  Receive Date: 20180518
  Receipt Date: 20180518
  Transmission Date: 20180711
  Serious: Yes (Hospitalization)
  Sender: FDA-Public Use
  Company Number: DE-ROCHE-2122839

PATIENT
  Age: 49 Year
  Sex: Male

DRUGS (9)
  1. LEVOMETHADONE HYDROCHLORIDE [Suspect]
     Active Substance: LEVOMETHADONE HYDROCHLORIDE
     Indication: TUMOUR PAIN
     Route: 065
  2. IPILIMUMAB [Suspect]
     Active Substance: IPILIMUMAB
     Indication: MALIGNANT MELANOMA
     Dosage: 219 MG, Q3WK
     Route: 042
     Dates: start: 20170901, end: 20171103
  3. VEMURAFENIB. [Suspect]
     Active Substance: VEMURAFENIB
     Indication: MALIGNANT MELANOMA
     Route: 065
  4. DEXAMETHASON [Suspect]
     Active Substance: DEXAMETHASONE
     Indication: PRODUCT USED FOR UNKNOWN INDICATION
     Dosage: 6 MG, QD
     Route: 048
     Dates: start: 20170919, end: 20170925
  5. AMPICILLIN [Concomitant]
     Active Substance: AMPICILLIN
     Indication: PRODUCT USED FOR UNKNOWN INDICATION
     Route: 042
     Dates: start: 20170921
  6. OXYCODONE HYDROCHLORIDE. [Suspect]
     Active Substance: OXYCODONE HYDROCHLORIDE
     Indication: TUMOUR PAIN
     Route: 065
  7. NIVOLUMAB [Suspect]
     Active Substance: NIVOLUMAB
     Indication: MALIGNANT MELANOMA
     Route: 042
     Dates: start: 20170901, end: 20171117
  8. COBIMETINIB. [Suspect]
     Active Substance: COBIMETINIB
     Indication: MALIGNANT MELANOMA
     Route: 065
  9. DEXAMETHASON [Suspect]
     Active Substance: DEXAMETHASONE
     Indication: PRODUCT USED FOR UNKNOWN INDICATION
     Route: 048
     Dates: start: 20170926

REACTIONS (18)
  - Muscular weakness [Not Recovered/Not Resolved]
  - C-reactive protein increased [Unknown]
  - Constipation [Recovered/Resolved]
  - Malaise [Recovered/Resolved]
  - Night sweats [Recovered/Resolved]
  - Tumour pain [Not Recovered/Not Resolved]
  - General physical health deterioration [Recovered/Resolved]
  - Decreased appetite [Unknown]
  - Oedema peripheral [Recovered/Resolved]
  - Gamma-glutamyltransferase increased [Recovering/Resolving]
  - Diarrhoea [Recovered/Resolved]
  - Metastases to bone [Unknown]
  - Blood bilirubin increased [Recovered/Resolved]
  - Vomiting [Recovered/Resolved]
  - Temporomandibular joint syndrome [Recovering/Resolving]
  - Cushingoid [Not Recovered/Not Resolved]
  - Malignant neoplasm progression [Not Recovered/Not Resolved]
  - Urinary tract infection [Recovered/Resolved]

NARRATIVE: CASE EVENT DATE: 20170919
